FAERS Safety Report 7319390 (Version 5)
Quarter: 2014Q4

REPORT INFORMATION
  Report Type: Spontaneous
  Country: DK (occurrence: DK)
  Receive Date: 20100314
  Receipt Date: 20141009
  Transmission Date: 20150529
  Serious: Yes (Other)
  Sender: FDA-Public Use
  Company Number: DK-JNJFOC-20100301480

PATIENT
  Age: 24 Year
  Sex: Male
  Weight: 79 kg

DRUGS (2)
  1. REMICADE [Suspect]
     Active Substance: INFLIXIMAB
     Indication: PRODUCT USED FOR UNKNOWN INDICATION
     Route: 042
     Dates: start: 20010514, end: 20090319
  2. HUMIRA [Interacting]
     Active Substance: ADALIMUMAB
     Indication: CROHN^S DISEASE
     Route: 058
     Dates: start: 20090619, end: 20140326

REACTIONS (3)
  - Drug ineffective [Unknown]
  - Drug interaction [Recovered/Resolved]
  - Superficial spreading melanoma stage III [Recovered/Resolved]

NARRATIVE: CASE EVENT DATE: 20091201
